FAERS Safety Report 5389419-2 (Version None)
Quarter: 2007Q3

REPORT INFORMATION
  Report Type: 
  Country: None (occurrence: None)
  Receive Date: 20070703
  Receipt Date: 20070322
  Transmission Date: 20080115
  Serious: No
  Sender: FDA-Public Use
  Company Number: 2007PV032187

PATIENT
  Age: 62 Year
  Sex: Male

DRUGS (8)
  1. SYMLIN [Suspect]
     Indication: TYPE 2 DIABETES MELLITUS
     Dosage: 120 MCG; SC   60 MCG; SC
     Route: 058
     Dates: start: 20070301, end: 20070316
  2. SYMLIN [Suspect]
     Indication: TYPE 2 DIABETES MELLITUS
     Dosage: 120 MCG; SC   60 MCG; SC
     Route: 058
     Dates: start: 20070317
  3. HUMALOG [Suspect]
     Indication: TYPE 2 DIABETES MELLITUS
     Dosage: SC
     Route: 058
  4. LEVEMIR [Suspect]
     Indication: TYPE 2 DIABETES MELLITUS
     Dosage: 100 UNITS;QPM;SC
     Route: 058
  5. FISH OIL [Suspect]
     Indication: BLOOD CHOLESTEROL INCREASED
     Dosage: PO
     Route: 048
     Dates: end: 20070321
  6. ASPIRIN [Suspect]
     Indication: BLOOD CHOLESTEROL INCREASED
     Dosage: PO
     Route: 048
     Dates: end: 20070321
  7. SYNTHROID [Suspect]
     Indication: THYROID DISORDER
     Dosage: PO
     Route: 048
  8. PROTONIX [Suspect]
     Indication: GASTRIC DISORDER
     Dosage: PO
     Route: 048

REACTIONS (5)
  - BLOOD GLUCOSE ABNORMAL [None]
  - BLOOD GLUCOSE DECREASED [None]
  - BLOOD GLUCOSE INCREASED [None]
  - DRUG INEFFECTIVE [None]
  - STOMACH DISCOMFORT [None]
